FAERS Safety Report 17646804 (Version 2)
Quarter: 2020Q3

REPORT INFORMATION
  Report Type: Spontaneous
  Country: DE (occurrence: DE)
  Receive Date: 20200408
  Receipt Date: 20200720
  Transmission Date: 20201102
  Serious: Yes (Other)
  Sender: FDA-Public Use
  Company Number: DE-TEVA-2020-DE-1221041

PATIENT
  Age: 34 Year
  Sex: Male
  Weight: 80 kg

DRUGS (2)
  1. CITALOPRAM [Concomitant]
     Active Substance: CITALOPRAM HYDROBROMIDE
     Indication: DEPRESSION
     Dosage: 20MG
     Route: 048
     Dates: start: 2010
  2. FINASTERID [Suspect]
     Active Substance: FINASTERIDE
     Indication: ALOPECIA
     Dosage: 1,25MG
     Route: 048
     Dates: start: 2010

REACTIONS (10)
  - Fatigue [Recovered/Resolved]
  - Suicidal ideation [Recovered/Resolved]
  - Hyperhidrosis [Recovered/Resolved]
  - Libido disorder [Recovered/Resolved]
  - Mental impairment [Not Recovered/Not Resolved]
  - Mood altered [Recovered/Resolved]
  - Withdrawal syndrome [Recovered/Resolved]
  - Panic attack [Recovered/Resolved]
  - Feeling abnormal [Recovered/Resolved]
  - Depression [Recovered/Resolved]

NARRATIVE: CASE EVENT DATE: 202001
